FAERS Safety Report 14083869 (Version 2)
Quarter: 2017Q4

REPORT INFORMATION
  Report Type: Spontaneous
  Country: JO (occurrence: JO)
  Receive Date: 20171013
  Receipt Date: 20171027
  Transmission Date: 20180321
  Serious: Yes (Death, Other)
  Sender: FDA-Public Use
  Company Number: JO-ASTELLAS-2017US041511

PATIENT
  Sex: Male

DRUGS (6)
  1. TENOFOVIR [Concomitant]
     Active Substance: TENOFOVIR
     Indication: HEPATITIS B
     Dosage: UNK UNK, UNKNOWN FREQ.
     Route: 065
  2. MYCAMINE [Suspect]
     Active Substance: MICAFUNGIN SODIUM
     Indication: CANDIDA INFECTION
     Route: 041
     Dates: start: 2017, end: 2017
  3. CLEXANE [Concomitant]
     Active Substance: ENOXAPARIN SODIUM
     Indication: PRODUCT USED FOR UNKNOWN INDICATION
     Dosage: UNK UNK, UNKNOWN FREQ.
     Route: 065
  4. PROGRAF [Concomitant]
     Active Substance: TACROLIMUS\TACROLIMUS ANHYDROUS
     Indication: PRODUCT USED FOR UNKNOWN INDICATION
     Dosage: UNK UNK, UNKNOWN FREQ.
     Route: 065
  5. MYCAMINE [Suspect]
     Active Substance: MICAFUNGIN SODIUM
     Route: 041
     Dates: start: 20171004, end: 20171006
  6. NEXIUM [Concomitant]
     Active Substance: ESOMEPRAZOLE MAGNESIUM
     Indication: PRODUCT USED FOR UNKNOWN INDICATION
     Dosage: UNK UNK, UNKNOWN FREQ.
     Route: 065

REACTIONS (2)
  - Cardiac arrest [Fatal]
  - Pulmonary embolism [Unknown]

NARRATIVE: CASE EVENT DATE: 201710
